FAERS Safety Report 4832424-2 (Version None)
Quarter: 2005Q4

REPORT INFORMATION
  Report Type: 
  Country: None (occurrence: None)
  Receive Date: 20051117
  Receipt Date: 20051104
  Transmission Date: 20060501
  Serious: Yes (Hospitalization)
  Sender: FDA-Public Use
  Company Number: USA0507103892

PATIENT
  Age: 75 Year
  Sex: Female

DRUGS (3)
  1. FORTEO [Suspect]
     Indication: OSTEOPOROSIS
     Dosage: 20 UG DAY
     Dates: start: 20050716
  2. SINEMET [Concomitant]
  3. CALCIUM GLUCONATE [Concomitant]

REACTIONS (11)
  - ABDOMINAL PAIN [None]
  - CONSTIPATION [None]
  - ERUCTATION [None]
  - FLANK PAIN [None]
  - FLATULENCE [None]
  - LIPASE INCREASED [None]
  - MEDICAL DEVICE COMPLICATION [None]
  - PHARMACEUTICAL PRODUCT COMPLAINT [None]
  - POLLAKIURIA [None]
  - PRURITUS GENERALISED [None]
  - TREMOR [None]
